FAERS Safety Report 6206656-5 (Version None)
Quarter: 2009Q2

REPORT INFORMATION
  Report Type: 
  Country: None (occurrence: None)
  Receive Date: 20090518
  Receipt Date: 20090129
  Transmission Date: 20091009
  Serious: No
  Sender: FDA-Public Use
  Company Number: WAES 0901USA04439

PATIENT
  Age: 43 Year
  Sex: Female

DRUGS (11)
  1. JANUVIA [Suspect]
     Indication: DIABETES MELLITUS
     Dosage: 100 MG/DAILY/PO
     Route: 048
     Dates: start: 20090123
  2. GLUCOVANCE [Concomitant]
  3. HYDRODIURIL [Concomitant]
  4. LOPID [Concomitant]
  5. LORTAB [Concomitant]
  6. PRILOSEC [Concomitant]
  7. SEROQUEL [Concomitant]
  8. SOMA [Concomitant]
  9. VALIUM [Concomitant]
  10. XANAX [Concomitant]
  11. NORTRIPTYLINE HCL [Concomitant]

REACTIONS (2)
  - BLOOD GLUCOSE ABNORMAL [None]
  - DRUG INEFFECTIVE [None]
